FAERS Safety Report 17128762 (Version 4)
Quarter: 2020Q3

REPORT INFORMATION
  Report Type: Other
  Country: US (occurrence: US)
  Receive Date: 20191209
  Receipt Date: 20200914
  Transmission Date: 20201102
  Serious: Yes (Other)
  Sender: FDA-Public Use
  Company Number: US-INTERCEPT-PM2019002178

PATIENT
  Age: 53 Year
  Sex: Female

DRUGS (7)
  1. LEVOTHYROXINE. [Concomitant]
     Active Substance: LEVOTHYROXINE
     Indication: HYPOTHYROIDISM
     Dosage: 100 MCG
  2. MULTIVITAMIN [Concomitant]
     Active Substance: VITAMINS
     Dosage: UNK
  3. OCALIVA [Suspect]
     Active Substance: OBETICHOLIC ACID
     Indication: PRIMARY BILIARY CHOLANGITIS
     Dosage: 5 MG, QD
     Route: 048
     Dates: start: 201703, end: 201907
  4. CARVEDILOL. [Concomitant]
     Active Substance: CARVEDILOL
     Dosage: 3.125 MG, BID
     Route: 048
  5. VITAMIN D [Concomitant]
     Active Substance: VITAMIN D NOS
     Indication: VITAMIN D DEFICIENCY
     Dosage: 1000 IU, UNK
  6. OCALIVA [Suspect]
     Active Substance: OBETICHOLIC ACID
     Dosage: 5 MG, QD
     Route: 048
     Dates: start: 20190823
  7. URSODEOXYCHOLIC ACID [Concomitant]
     Active Substance: URSODIOL
     Indication: PRIMARY BILIARY CHOLANGITIS
     Dosage: 1000 MG, QD

REACTIONS (17)
  - Portal hypertension [Unknown]
  - Gamma-glutamyltransferase increased [Unknown]
  - Alanine aminotransferase increased [Recovered/Resolved]
  - Hepatic lesion [Not Recovered/Not Resolved]
  - Joint swelling [Recovering/Resolving]
  - Weight increased [Recovering/Resolving]
  - Ascites [Unknown]
  - Cholelithiasis [Unknown]
  - Pain in extremity [Recovering/Resolving]
  - Insurance issue [Recovered/Resolved]
  - Therapy interrupted [Recovered/Resolved]
  - Vitamin D deficiency [Not Recovered/Not Resolved]
  - Varices oesophageal [Unknown]
  - Splenomegaly [Unknown]
  - Pruritus [Recovered/Resolved]
  - Peripheral swelling [Not Recovered/Not Resolved]
  - Aspartate aminotransferase increased [Recovered/Resolved]

NARRATIVE: CASE EVENT DATE: 20191025
